FAERS Safety Report 25070446 (Version 1)
Quarter: 2025Q1

REPORT INFORMATION
  Report Type: Spontaneous
  Country: US (occurrence: US)
  Receive Date: 20250312
  Receipt Date: 20250312
  Transmission Date: 20250409
  Serious: No
  Sender: SANOFI AVENTIS
  Company Number: US-SA-2025SA071295

PATIENT
  Age: 32 Year
  Sex: Male
  Weight: 73 kg

DRUGS (9)
  1. DUPIXENT [Suspect]
     Active Substance: DUPILUMAB
     Indication: Eosinophilic oesophagitis
     Dosage: 300 MG, QW
     Route: 058
     Dates: start: 20250220
  2. MOMETASONE FUROATE [Concomitant]
     Active Substance: MOMETASONE FUROATE
  3. PROBIOTICS NOS [Concomitant]
     Active Substance: PROBIOTICS NOS
  4. BIOTIN [Concomitant]
     Active Substance: BIOTIN
  5. VITAMINS [Concomitant]
     Active Substance: VITAMINS
  6. BUTALBITAL, ACETAMINOPHEN, AND CAFFEINE [Concomitant]
     Active Substance: ACETAMINOPHEN\BUTALBITAL\CAFFEINE
  7. TRAZODONE HCL [Concomitant]
     Active Substance: TRAZODONE HYDROCHLORIDE
  8. SERTRALINE HYDROCHLORIDE [Concomitant]
     Active Substance: SERTRALINE HYDROCHLORIDE
  9. OMEPRAZOLE [Concomitant]
     Active Substance: OMEPRAZOLE

REACTIONS (3)
  - Injection site pain [Recovered/Resolved]
  - Product preparation error [Unknown]
  - Injection site nodule [Recovered/Resolved]

NARRATIVE: CASE EVENT DATE: 20250201
